FAERS Safety Report 6735021-7 (Version None)
Quarter: 2010Q2

REPORT INFORMATION
  Report Type: 
  Country: None (occurrence: None)
  Receive Date: 20100521
  Receipt Date: 20100517
  Transmission Date: 20101027
  Serious: Yes (Hospitalization, Other)
  Sender: FDA-Public Use
  Company Number: US-BAYER-201015051NA

PATIENT
  Age: 20 Year
  Sex: Female

DRUGS (2)
  1. YAZ [Suspect]
     Indication: CONTRACEPTION
     Route: 048
     Dates: start: 20090701
  2. YAZ [Suspect]
     Route: 048

REACTIONS (3)
  - FEELING HOT [None]
  - OEDEMA PERIPHERAL [None]
  - THROMBOSIS [None]
